FAERS Safety Report 6184074-6 (Version None)
Quarter: 2009Q2

REPORT INFORMATION
  Report Type: 
  Country: None (occurrence: None)
  Receive Date: 20090508
  Receipt Date: 20090429
  Transmission Date: 20091009
  Serious: Yes (Hospitalization)
  Sender: FDA-Public Use
  Company Number: DO-BAYER-200915884LA

PATIENT
  Age: 70 Year
  Sex: Male

DRUGS (7)
  1. AVELOX [Suspect]
     Indication: PROSTATITIS
     Route: 042
  2. GLIBENCLAMIDE [Concomitant]
     Indication: DIABETES MELLITUS
     Route: 065
  3. NEOMELUBRIN [Concomitant]
     Indication: DRUG USE FOR UNKNOWN INDICATION
     Route: 065
  4. PANTECTA [Concomitant]
     Indication: DRUG USE FOR UNKNOWN INDICATION
     Route: 065
  5. AMIKACIN [Concomitant]
     Indication: DRUG USE FOR UNKNOWN INDICATION
     Route: 065
  6. CIPROFLOXACIN [Concomitant]
     Indication: PROSTATITIS
     Route: 042
  7. CIPROFLOXACIN HCL [Concomitant]
     Indication: PROSTATITIS
     Route: 042

REACTIONS (3)
  - CHILLS [None]
  - HYPERHIDROSIS [None]
  - TREMOR [None]
